FAERS Safety Report 8791248 (Version 1)
Quarter: 2012Q4

REPORT INFORMATION
  Report Type: Spontaneous
  Country: GB (occurrence: None)
  Receive Date: 20120912
  Receipt Date: 20120912
  Transmission Date: 20130627
  Serious: Yes (Hospitalization)
  Sender: FDA-Public Use
  Company Number: 2012NA000099

PATIENT
  Age: 1 Day
  Sex: Female
  Weight: 3.04 kg

DRUGS (1)
  1. DICLOFENAC [Suspect]

REACTIONS (10)
  - Hydrops foetalis [None]
  - Ascites [None]
  - Right atrial dilatation [None]
  - Dilatation ventricular [None]
  - Pericardial effusion [None]
  - Pleural effusion [None]
  - Atrial septal defect [None]
  - Pulmonary artery dilatation [None]
  - Tricuspid valve incompetence [None]
  - Maternal drugs affecting foetus [None]
